FAERS Safety Report 21558789 (Version 1)
Quarter: 2022Q4

REPORT INFORMATION
  Report Type: Spontaneous
  Country: NL (occurrence: NL)
  Receive Date: 20221107
  Receipt Date: 20221107
  Transmission Date: 20230113
  Serious: Yes (Life-Threatening, Other)
  Sender: FDA-Public Use
  Company Number: None

PATIENT
  Sex: Female
  Weight: 78 kg

DRUGS (6)
  1. FLUCONAZOLE [Interacting]
     Active Substance: FLUCONAZOLE
     Indication: Oesophageal candidiasis
     Dosage: CAPSULE  50MG / BRAND NAME NOT SPECIFIED, FORM STRENGTH : 50 MG, UNIT DOSE : 100 MG, THERAPY START
     Route: 065
     Dates: end: 20221005
  2. FLUCONAZOLE [Interacting]
     Active Substance: FLUCONAZOLE
     Dosage: LOADING DOSE OF 200 MG, CAPSULE  50MG / BRAND NAME NOT SPECIFIED, FORM STRENGTH : 50 MG, UNIT DOSE :
     Route: 065
     Dates: start: 20220928
  3. CITALOPRAM [Interacting]
     Active Substance: CITALOPRAM HYDROBROMIDE
     Indication: Depression
     Dosage: 20 MILLIGRAM DAILY; 1 X PER DAY 1 PIECE, TABLET COATED 20MG / BRAND NAME NOT SPECIFIED, FORM STRENGT
     Route: 065
     Dates: start: 20190101
  4. LEVOTHYROXINE [Concomitant]
     Active Substance: LEVOTHYROXINE
     Indication: Product used for unknown indication
     Dosage: CAPSULE, 112 UG (MICROGRAM),  CAPSULE 112UG / BRAND NAME NOT SPECIFIED, FORM STRENGTH : 112 MICROGRA
     Route: 065
  5. OMEPRAZOLE MAGNESIUM [Concomitant]
     Active Substance: OMEPRAZOLE MAGNESIUM
     Indication: Product used for unknown indication
     Dosage: OMEPRAZOL TABLET MSR 20MG / LOSECOSAN TABLET MSR 20MG, FORM STRENGTH : 20 MG, THERAPY START DATE AND
     Route: 065
  6. CELECOXIB [Concomitant]
     Active Substance: CELECOXIB
     Indication: Product used for unknown indication
     Dosage: CAPSULE 100MG / BRAND NAME NOT SPECIFIED, FORM STRENGTH : 100 MG, THERAPY START DATE AND END DATE:
     Route: 065

REACTIONS (2)
  - Drug interaction [Recovered/Resolved]
  - Electrocardiogram QT prolonged [Recovered/Resolved]
